FAERS Safety Report 21945886 (Version 1)
Quarter: 2023Q1

REPORT INFORMATION
  Report Type: Spontaneous
  Country: US (occurrence: US)
  Receive Date: 20230202
  Receipt Date: 20230202
  Transmission Date: 20230418
  Serious: Yes (Other)
  Sender: FDA-Public Use
  Company Number: US-SA-SAC20230201001751

PATIENT
  Age: 3 Year
  Sex: Female

DRUGS (2)
  1. DUPIXENT [Suspect]
     Active Substance: DUPILUMAB
     Indication: Dermatitis atopic
     Dosage: 200 MG, QM
     Route: 058
     Dates: start: 202208
  2. EPIPEN [EPINEPHRINE] [Concomitant]
     Indication: Food allergy
     Dosage: UNK

REACTIONS (2)
  - Erythema multiforme [Unknown]
  - Rash macular [Unknown]
